FAERS Safety Report 10581782 (Version 2)
Quarter: 2014Q4

REPORT INFORMATION
  Report Type: Spontaneous
  Country: AU (occurrence: AU)
  Receive Date: 20141113
  Receipt Date: 20141113
  Transmission Date: 20150529
  Serious: Yes (Life-Threatening, Hospitalization, Other)
  Sender: FDA-Public Use
  Company Number: AU-009507513-1105USA01549

PATIENT
  Age: 71 Year
  Sex: Male
  Weight: 95.2 kg

DRUGS (21)
  1. ADALAT [Concomitant]
     Active Substance: NIFEDIPINE
     Dosage: 1 MANE
     Route: 048
  2. COUMADIN [Concomitant]
     Active Substance: WARFARIN SODIUM
     Dosage: AS DIRECTED
     Route: 048
  3. NEXIUM [Concomitant]
     Active Substance: ESOMEPRAZOLE MAGNESIUM
     Dosage: 1 DAILY M.D.U.
     Route: 048
  4. PLAQUENIL [Concomitant]
     Active Substance: HYDROXYCHLOROQUINE SULFATE
     Dosage: 1 B.D.
     Route: 048
  5. LIPITOR [Concomitant]
     Active Substance: ATORVASTATIN CALCIUM
     Dosage: 1 NOCTE
     Route: 048
  6. NITROLINGUAL [Concomitant]
     Active Substance: NITROGLYCERIN
     Dosage: 1 PUFF S/L P.R.N.
     Route: 060
  7. NOTEN [Concomitant]
     Active Substance: ATENOLOL
     Dosage: 1/2 B.D. M.D.U.
     Route: 048
  8. COUMADIN [Concomitant]
     Active Substance: WARFARIN SODIUM
     Dosage: 1 NOCTE AS DIRECTED
     Route: 048
  9. OSTEVIT D [Concomitant]
     Dosage: 2 MANE C.C.
     Route: 048
  10. PREDNISOLON [Concomitant]
     Active Substance: PREDNISOLONE
     Dosage: AS DIRECTED
     Route: 048
  11. SALAZOPYRIN [Concomitant]
     Active Substance: SULFASALAZINE
     Dosage: 2 B.D.
     Route: 048
  12. METOPROLOL SUCCINATE. [Concomitant]
     Active Substance: METOPROLOL SUCCINATE
     Dosage: 25 MG, UNK
     Dates: start: 2006
  13. ASPIRIN. [Concomitant]
     Active Substance: ASPIRIN
     Dosage: 1 MANE
     Route: 048
  14. ATACAND PLUS [Concomitant]
     Active Substance: CANDESARTAN CILEXETIL\HYDROCHLOROTHIAZIDE
     Dosage: 1 MANE
     Route: 048
  15. CALTRATE [Concomitant]
     Active Substance: CALCIUM CARBONATE
     Dosage: 1 NOCTE C.C.
     Route: 048
  16. COUMADIN [Concomitant]
     Active Substance: WARFARIN SODIUM
     Dosage: AS DIRECTED
     Route: 048
  17. PANADOL [Concomitant]
     Active Substance: ACETAMINOPHEN
     Dosage: 1330 MG , 2 T.I.D. P.R.N.
  18. VYTORIN [Suspect]
     Active Substance: EZETIMIBE\SIMVASTATIN
     Indication: CARDIAC DISORDER
     Dosage: UNKNOWN
     Route: 048
     Dates: start: 2006
  19. ARAVA [Concomitant]
     Active Substance: LEFLUNOMIDE
     Dosage: 1 NOCTE
     Route: 048
  20. ARISTOCORT (TRIAMCINOLONE ACETONIDE) [Concomitant]
     Dosage: APPLY B.D.
     Route: 061
  21. BLUE LIZARD SORBOLENE CREAM [Concomitant]
     Dosage: UNK UNK, BID
     Route: 061

REACTIONS (7)
  - Pneumonia [Unknown]
  - Myositis [Recovering/Resolving]
  - Arthropathy [Unknown]
  - Cardiac disorder [Unknown]
  - Cataract [Unknown]
  - Onychomycosis [Unknown]
  - Myositis [Unknown]

NARRATIVE: CASE EVENT DATE: 200812
